FAERS Safety Report 5610902-6 (Version None)
Quarter: 2008Q1

REPORT INFORMATION
  Report Type: 
  Country: None (occurrence: None)
  Receive Date: 20080201
  Receipt Date: 20080130
  Transmission Date: 20080703
  Serious: Yes (Death, Hospitalization)
  Sender: FDA-Public Use
  Company Number: US-BRISTOL-MYERS SQUIBB COMPANY-14058903

PATIENT
  Age: 93 Year
  Sex: Male
  Weight: 91 kg

DRUGS (9)
  1. ABILIFY [Suspect]
     Dates: start: 20070601
  2. LEXAPRO [Concomitant]
  3. SINGULAIR [Concomitant]
  4. LACTULOSE [Concomitant]
  5. FLOMAX [Concomitant]
  6. AVELOX [Concomitant]
  7. ELAVIL [Concomitant]
  8. LUNESTA [Concomitant]
  9. ANTIBIOTICS [Concomitant]

REACTIONS (9)
  - CONFUSIONAL STATE [None]
  - DROOLING [None]
  - DYSKINESIA [None]
  - DYSPHAGIA [None]
  - DYSPHASIA [None]
  - EATING DISORDER [None]
  - LETHARGY [None]
  - MYOCARDIAL INFARCTION [None]
  - RENAL FAILURE [None]
